FAERS Safety Report 9674290 (Version 1)
Quarter: 2013Q4

REPORT INFORMATION
  Report Type: Spontaneous
  Country: US (occurrence: US)
  Receive Date: 20131107
  Receipt Date: 20131107
  Transmission Date: 20140711
  Serious: No
  Sender: FDA-Public Use
  Company Number: US-009507513-1311USA001351

PATIENT
  Sex: Female
  Weight: 82.86 kg

DRUGS (1)
  1. NEXPLANON [Suspect]
     Indication: CONTRACEPTION
     Dosage: SINGLE ROD, SUBDERMAL RIGHT ARM
     Route: 059
     Dates: start: 20131028

REACTIONS (4)
  - Paraesthesia [Unknown]
  - Pain in extremity [Unknown]
  - Hypoaesthesia [Unknown]
  - Infection [Unknown]
